FAERS Safety Report 8598899-0 (Version None)
Quarter: 2012Q3

REPORT INFORMATION
  Report Type: 
  Country: None (occurrence: None)
  Receive Date: 20120816
  Receipt Date: 19950420
  Transmission Date: 20120928
  Serious: Yes (Other)
  Sender: FDA-Public Use
  Company Number: US-ROCHE-1100867

PATIENT
  Sex: Female

DRUGS (7)
  1. ASCORBATE SODIUM [Concomitant]
  2. METOPROLOL TARTRATE [Concomitant]
  3. FLUVOXAMINE MALEATE [Concomitant]
  4. ACTIVASE [Suspect]
     Indication: ACUTE MYOCARDIAL INFARCTION
  5. NITROSTAT [Concomitant]
  6. COUMADIN [Concomitant]
     Route: 048
  7. ENALAPRIL MALEATE [Concomitant]

REACTIONS (2)
  - POSTINFARCTION ANGINA [None]
  - UTERINE HAEMORRHAGE [None]
